FAERS Safety Report 6052815-4 (Version None)
Quarter: 2009Q1

REPORT INFORMATION
  Report Type: 
  Country: None (occurrence: None)
  Receive Date: 20090122
  Receipt Date: 20090108
  Transmission Date: 20090719
  Serious: Yes (Hospitalization)
  Sender: FDA-Public Use
  Company Number: KV200801002

PATIENT
  Age: 72 Year
  Sex: Male
  Weight: 89.8 kg

DRUGS (11)
  1. ISOSORBIDE MONONITRATE [Suspect]
     Indication: ARTERIOSCLEROSIS
     Dosage: 30 MG, QD, ORAL
     Route: 048
     Dates: start: 19960101
  2. LANTUS [Concomitant]
  3. AMARYL [Concomitant]
  4. ASPIRIN [Concomitant]
  5. ATENOLOL [Concomitant]
  6. DARVOCET [Concomitant]
  7. ALLOPURINOL [Concomitant]
  8. LIPITOR [Concomitant]
  9. LOVAZA [Concomitant]
  10. PRILOSEC /00661201/ (OMEPRAZOLE) [Concomitant]
  11. MULTIVITAMINS (ASCORBIC ACID, ERGOCALCIFEROL, FOLIC ACID, NICOTINAMIDE [Concomitant]

REACTIONS (3)
  - BLOOD PRESSURE DECREASED [None]
  - DIZZINESS [None]
  - PRODUCT QUALITY ISSUE [None]
